FAERS Safety Report 18502807 (Version 1)
Quarter: 2020Q4

REPORT INFORMATION
  Report Type: Spontaneous
  Country: US (occurrence: US)
  Receive Date: 20201113
  Receipt Date: 20201113
  Transmission Date: 20210114
  Serious: Yes (Other)
  Sender: FDA-Public Use
  Company Number: US-PFIZER INC-2020093703

PATIENT
  Age: 59 Year
  Sex: Male

DRUGS (3)
  1. CELEBREX [Suspect]
     Active Substance: CELECOXIB
     Dosage: UNK
  2. CELEBREX [Suspect]
     Active Substance: CELECOXIB
     Dosage: 100 MG, 2X/DAY
     Route: 048
  3. FLECTOR DOLORE [Concomitant]
     Dosage: UNK

REACTIONS (3)
  - Product dispensing error [Unknown]
  - Tremor [Unknown]
  - Coma [Unknown]
